FAERS Safety Report 9270618 (Version 2)
Quarter: 2013Q2

REPORT INFORMATION
  Report Type: Spontaneous
  Country: US (occurrence: US)
  Receive Date: 20130503
  Receipt Date: 20130619
  Transmission Date: 20140414
  Serious: Yes (Other)
  Sender: FDA-Public Use
  Company Number: US-BAYER-2013-055989

PATIENT
  Age: 51 Year
  Sex: Female
  Weight: 170.1 kg

DRUGS (10)
  1. XARELTO [Suspect]
     Indication: HEART RATE IRREGULAR
     Dosage: 20 MG, QD
     Route: 048
     Dates: start: 20130419, end: 20130428
  2. ACETYLSALICYLIC ACID [Suspect]
     Indication: CARDIAC DISORDER
     Dosage: 325 MG, QD
     Route: 048
  3. BENICAR [Concomitant]
     Indication: BLOOD PRESSURE ABNORMAL
     Dosage: UNK
     Route: 065
     Dates: start: 20010105
  4. METFORMIN [Concomitant]
     Indication: TYPE 2 DIABETES MELLITUS
     Dosage: UNK
     Route: 065
     Dates: start: 2001
  5. KLOR-CON [Concomitant]
     Indication: BLOOD POTASSIUM ABNORMAL
     Route: 065
  6. CYCLOBENZAPRINE [Concomitant]
     Indication: MUSCLE SPASMS
     Dosage: UNK
     Route: 065
     Dates: start: 20130603
  7. METOPROLOL [Concomitant]
     Indication: BLOOD PRESSURE ABNORMAL
     Route: 065
  8. DILTIAZEM [Concomitant]
     Indication: CARDIAC DISORDER
     Dosage: UNK
     Route: 065
     Dates: start: 20130418
  9. FUROSEMIDE [Concomitant]
     Indication: DIURETIC THERAPY
     Route: 065
  10. PRAVASTATIN [Concomitant]
     Route: 065

REACTIONS (5)
  - Vaginal haemorrhage [Not Recovered/Not Resolved]
  - Urinary tract infection [Not Recovered/Not Resolved]
  - Blood urine present [Not Recovered/Not Resolved]
  - Anaemia [Not Recovered/Not Resolved]
  - Product quality issue [None]
